FAERS Safety Report 8331941-0 (Version None)
Quarter: 2012Q2

REPORT INFORMATION
  Report Type: 
  Country: None (occurrence: None)
  Receive Date: 20120502
  Receipt Date: 20120420
  Transmission Date: 20120825
  Serious: Yes (Hospitalization)
  Sender: FDA-Public Use
  Company Number: CA-ELI_LILLY_AND_COMPANY-CA201204007844

PATIENT
  Age: 66 Year
  Sex: Female

DRUGS (3)
  1. CALCIUM [Concomitant]
  2. FORTEO [Suspect]
     Indication: OSTEOPOROSIS
     Dosage: 20 UG, QD
     Route: 058
     Dates: start: 20120326, end: 20120421
  3. VITAMIN D [Concomitant]

REACTIONS (5)
  - PAIN [None]
  - CHILLS [None]
  - RESPIRATORY DISORDER [None]
  - LUNG INFECTION [None]
  - PYREXIA [None]
